FAERS Safety Report 22658497 (Version 1)
Quarter: 2023Q2

REPORT INFORMATION
  Report Type: Spontaneous
  Country: US (occurrence: US)
  Receive Date: 20230630
  Receipt Date: 20230630
  Transmission Date: 20230721
  Serious: Yes (Other)
  Sender: FDA-Public Use
  Company Number: US-MYLANLABS-2023M1068273

PATIENT
  Age: 63 Year
  Sex: Male

DRUGS (9)
  1. SUCRALFATE [Suspect]
     Active Substance: SUCRALFATE
     Indication: Abdominal pain upper
     Dosage: UNK
     Route: 065
  2. SUCRALFATE [Suspect]
     Active Substance: SUCRALFATE
     Indication: Nausea
  3. SUCRALFATE [Suspect]
     Active Substance: SUCRALFATE
     Indication: Abdominal discomfort
  4. DICYCLOMINE [Suspect]
     Active Substance: DICYCLOMINE HYDROCHLORIDE
     Indication: Abdominal pain upper
     Dosage: UNK
     Route: 065
  5. DICYCLOMINE [Suspect]
     Active Substance: DICYCLOMINE HYDROCHLORIDE
     Indication: Nausea
  6. DICYCLOMINE [Suspect]
     Active Substance: DICYCLOMINE HYDROCHLORIDE
     Indication: Abdominal discomfort
  7. HYOSCYAMINE [Suspect]
     Active Substance: HYOSCYAMINE
     Indication: Abdominal pain upper
     Dosage: UNK
     Route: 065
  8. HYOSCYAMINE [Suspect]
     Active Substance: HYOSCYAMINE
     Indication: Nausea
  9. HYOSCYAMINE [Suspect]
     Active Substance: HYOSCYAMINE
     Indication: Abdominal discomfort

REACTIONS (1)
  - Drug ineffective [Unknown]
